FAERS Safety Report 6228715-3 (Version None)
Quarter: 2009Q2

REPORT INFORMATION
  Report Type: 
  Country: None (occurrence: None)
  Receive Date: 20090615
  Receipt Date: 20090608
  Transmission Date: 20091009
  Serious: No
  Sender: FDA-Public Use
  Company Number: US-JNJFOC-20090603458

PATIENT
  Sex: Female
  Weight: 54.43 kg

DRUGS (2)
  1. FENTANYL TRANSDERMAL SYSTEM [Suspect]
     Indication: NEURALGIA
     Route: 062
  2. FENTANYL TRANSDERMAL SYSTEM [Suspect]
     Indication: NEURALGIA
     Route: 062

REACTIONS (3)
  - INCORRECT DRUG ADMINISTRATION DURATION [None]
  - PRODUCT QUALITY ISSUE [None]
  - WRONG TECHNIQUE IN DRUG USAGE PROCESS [None]
